FAERS Safety Report 8949640 (Version 3)
Quarter: 2013Q3

REPORT INFORMATION
  Report Type: Spontaneous
  Country: US (occurrence: US)
  Receive Date: 20121206
  Receipt Date: 20130813
  Transmission Date: 20140515
  Serious: Yes (Other)
  Sender: FDA-Public Use
  Company Number: US-BAYER-2012-127127

PATIENT
  Age: 70 Year
  Sex: Female

DRUGS (15)
  1. STIVARGA [Suspect]
     Indication: RECTOSIGMOID CANCER STAGE IV
     Dosage: 160 MG, QD
     Route: 048
     Dates: start: 20121127, end: 20121128
  2. STIVARGA [Suspect]
     Indication: RECTOSIGMOID CANCER STAGE IV
     Dosage: 40 MG, QOD
     Dates: start: 20121206
  3. ANTIMIGRAINE PREPARATIONS [Concomitant]
     Indication: MIGRAINE
  4. ZOLPIDEM [Concomitant]
     Dosage: 12.5 MG, HS
     Route: 048
     Dates: start: 20081114, end: 20121128
  5. VICODIN [Concomitant]
     Dosage: 1-2 TAB QID PRN
     Route: 048
     Dates: start: 20081114, end: 20121128
  6. ZOFRAN [Concomitant]
     Indication: NAUSEA
     Dosage: 4 MG, QID PRN
     Route: 048
     Dates: start: 20081114, end: 20121128
  7. REQUIP [Concomitant]
     Dosage: 3 MG, HS
     Dates: start: 20081114, end: 20121128
  8. MAXALT [Concomitant]
     Dosage: 3 MG, HS
     Route: 048
     Dates: start: 20081114, end: 20121128
  9. NEXIUM [Concomitant]
     Dosage: 40 MG DAILY
     Route: 048
     Dates: start: 20081114, end: 20121128
  10. VALTREX [Concomitant]
     Indication: STOMATITIS
     Dosage: UNK UNK, PRN
     Dates: start: 20081114, end: 20121128
  11. BACTRIM [Concomitant]
     Dosage: 1 DF, BID
     Route: 048
     Dates: start: 20081114, end: 20121128
  12. LORAZEPAM [Concomitant]
     Dosage: 1/2 TO 1 TABLET Q 6 HRS PRN
     Route: 048
  13. DRONABINOL [Concomitant]
     Dosage: 5 MG, BID
     Route: 048
     Dates: start: 20081114, end: 20121128
  14. ACYCLOVIR [ACICLOVIR] [Concomitant]
     Dosage: 5 %, BID PRN
     Route: 061
     Dates: start: 20081114, end: 20121128
  15. PROCHLORPERAZINE [Concomitant]
     Indication: NAUSEA
     Dosage: EVERY 6 HRS AS NEEDED
     Route: 048
     Dates: start: 20081114, end: 20121128

REACTIONS (6)
  - Migraine [Recovered/Resolved]
  - Hypertensive crisis [Recovered/Resolved]
  - Stomatitis [Not Recovered/Not Resolved]
  - Fatigue [Not Recovered/Not Resolved]
  - Abdominal pain [Not Recovered/Not Resolved]
  - Headache [None]
